FAERS Safety Report 5902098-8 (Version None)
Quarter: 2008Q3

REPORT INFORMATION
  Report Type: 
  Country: None (occurrence: None)
  Receive Date: 20080929
  Receipt Date: 20080917
  Transmission Date: 20090109
  Serious: Yes (Other)
  Sender: FDA-Public Use
  Company Number: US-PFIZER INC-2008065116

PATIENT
  Sex: Female
  Weight: 61.7 kg

DRUGS (11)
  1. CHANTIX [Suspect]
     Indication: SMOKING CESSATION THERAPY
     Dates: start: 20070521, end: 20071030
  2. CHANTIX [Suspect]
     Indication: TOBACCO USER
  3. FOSAMAX [Concomitant]
  4. MULTI-VITAMINS [Concomitant]
  5. ACETYLSALICYLIC ACID SRT [Concomitant]
  6. LEXAPRO [Concomitant]
  7. LEVOXYL [Concomitant]
  8. VICODIN ES [Concomitant]
  9. SOMA [Concomitant]
  10. TRAZODONE HCL [Concomitant]
  11. RESTORIL [Concomitant]

REACTIONS (7)
  - ABNORMAL DREAMS [None]
  - EPISTAXIS [None]
  - EXCORIATION [None]
  - FALL [None]
  - FEELING ABNORMAL [None]
  - NECK PAIN [None]
  - SOMNAMBULISM [None]
